FAERS Safety Report 4397496-0 (Version None)
Quarter: 2004Q3

REPORT INFORMATION
  Report Type: 
  Country: None (occurrence: None)
  Receive Date: 20040714
  Receipt Date: 20040629
  Transmission Date: 20050211
  Serious: Yes (Hospitalization, Other)
  Sender: FDA-Public Use
  Company Number: JP-BRISTOL-MYERS SQUIBB COMPANY-12627279

PATIENT
  Age: 68 Year
  Sex: Female

DRUGS (3)
  1. TAXOL [Suspect]
     Indication: LUNG NEOPLASM MALIGNANT
     Route: 042
     Dates: start: 20040621, end: 20040621
  2. PARAPLATIN [Suspect]
     Indication: LUNG NEOPLASM MALIGNANT
     Route: 042
     Dates: start: 20040621, end: 20040621
  3. FENTANYL [Concomitant]
     Dosage: TAP

REACTIONS (5)
  - ADRENAL HAEMORRHAGE [None]
  - BILATERAL HYDRONEPHROSIS [None]
  - PYREXIA [None]
  - URETERIC OBSTRUCTION [None]
  - VOMITING [None]
